FAERS Safety Report 4831106-0 (Version None)
Quarter: 2005Q4

REPORT INFORMATION
  Report Type: 
  Country: None (occurrence: None)
  Receive Date: 20051114
  Receipt Date: 20051028
  Transmission Date: 20060501
  Serious: Yes (Hospitalization)
  Sender: FDA-Public Use
  Company Number: CA_050908725

PATIENT
  Age: 84 Year
  Sex: Female
  Weight: 36 kg

DRUGS (2)
  1. FORTEO [Suspect]
     Indication: OSTEOPOROSIS
     Dosage: 20 UG DAY
     Dates: start: 20050627
  2. M-ESLON (MORPHINE SULFATE) [Concomitant]

REACTIONS (5)
  - ARTHRALGIA [None]
  - BEDRIDDEN [None]
  - DECUBITUS ULCER [None]
  - INTESTINAL OBSTRUCTION [None]
  - MALAISE [None]
